FAERS Safety Report 19134502 (Version 1)
Quarter: 2021Q2

REPORT INFORMATION
  Report Type: Report from Study
  Country: DE (occurrence: DE)
  Receive Date: 20210414
  Receipt Date: 20210414
  Transmission Date: 20210717
  Serious: Yes (Other)
  Sender: FDA-Public Use
  Company Number: DE-GLAXOSMITHKLINE-DE2021EME079168

PATIENT

DRUGS (1)
  1. BELANTAMAB MAFODOTIN. [Suspect]
     Active Substance: BELANTAMAB MAFODOTIN
     Indication: PLASMA CELL MYELOMA
     Dosage: UNK, 2.5 ML/KG
     Dates: end: 202102

REACTIONS (5)
  - Blindness [Recovering/Resolving]
  - Platelet count abnormal [Recovering/Resolving]
  - Inappropriate schedule of product administration [Unknown]
  - Haematotoxicity [Recovering/Resolving]
  - Visual impairment [Recovering/Resolving]
